FAERS Safety Report 4362619-6 (Version None)
Quarter: 2004Q2

REPORT INFORMATION
  Report Type: 
  Country: None (occurrence: None)
  Receive Date: 20040520
  Receipt Date: 20040506
  Transmission Date: 20050107
  Serious: Yes (Hospitalization)
  Sender: FDA-Public Use
  Company Number: 206140

PATIENT
  Age: 76 Year
  Sex: Female
  Weight: 45.4 kg

DRUGS (8)
  1. XOLAIR (OMALIZUMAB) PWDR + SOLVENT,INJECTION SOLN, 150MG [Suspect]
     Indication: DERMATITIS ATOPIC
     Dosage: 375 MG, Q2W, SUBCUTANEOUS
     Route: 058
     Dates: start: 20040101, end: 20040325
  2. PULMICORT [Concomitant]
  3. SINGULAIR [Concomitant]
  4. ZYRTEC (CETIRIZNIE HYDROCHLORIDE) [Concomitant]
  5. PEPCID [Concomitant]
  6. DOXEPIN (DOXEPIN HYDROCHLORIDE) [Concomitant]
  7. ALBUTEROL (ALBUTEROL SULFATE, ALBUTEROL) [Concomitant]
  8. IPRATROPIUM-BROMID (IPRATROPIUM BROMIDE) [Concomitant]

REACTIONS (1)
  - CARDIAC FAILURE CONGESTIVE [None]
